FAERS Safety Report 7557426-7 (Version None)
Quarter: 2011Q2

REPORT INFORMATION
  Report Type: 
  Country: None (occurrence: None)
  Receive Date: 20110620
  Receipt Date: 20110607
  Transmission Date: 20111010
  Serious: Yes (Hospitalization)
  Sender: FDA-Public Use
  Company Number: US-ROCHE-782710

PATIENT
  Sex: Female

DRUGS (3)
  1. PACLITAXEL [Suspect]
     Indication: FALLOPIAN TUBE CANCER
     Dosage: OVER 1 HOUR ON DAYS 1, 8 AND 15
     Route: 042
     Dates: start: 20100716
  2. CARBOPLATIN [Suspect]
     Indication: FALLOPIAN TUBE CANCER
     Dosage: 6 AUC ON DAY 1
     Route: 042
     Dates: start: 20100716
  3. BEVACIZUMAB [Suspect]
     Indication: FALLOPIAN TUBE CANCER
     Dosage: OVER 30 - 90 MIN ON DAY 1
     Route: 042
     Dates: start: 20100716

REACTIONS (6)
  - CONSTIPATION [None]
  - NAUSEA [None]
  - SMALL INTESTINAL OBSTRUCTION [None]
  - ABDOMINAL PAIN [None]
  - HYPERKALAEMIA [None]
  - VOMITING [None]
